FAERS Safety Report 7379692-3 (Version None)
Quarter: 2011Q1

REPORT INFORMATION
  Report Type: 
  Country: None (occurrence: None)
  Receive Date: 20110329
  Receipt Date: 20110328
  Transmission Date: 20110831
  Serious: No
  Sender: FDA-Public Use
  Company Number: US-PFIZER INC-2009206635

PATIENT
  Sex: Male
  Weight: 85.714 kg

DRUGS (6)
  1. PREDNISONE [Concomitant]
     Dosage: 250 MG, 4X/DAY
  2. LIPITOR [Suspect]
     Indication: BLOOD CHOLESTEROL INCREASED
     Dosage: 20 MG, 1X/DAY
  3. METHOTREXATE [Concomitant]
     Indication: RHEUMATOID ARTHRITIS
     Dosage: 12.5 MG, WEEKLY
  4. PHENOBARBITAL [Concomitant]
     Dosage: 30 MG, 3X/DAY
  5. FOLIC ACID [Concomitant]
     Dosage: UNK
  6. NABUMETONE [Concomitant]
     Dosage: 750 MG, 2X/DAY

REACTIONS (2)
  - LACTOSE INTOLERANCE [None]
  - BLOOD CHOLESTEROL INCREASED [None]
